FAERS Safety Report 15460850 (Version 3)
Quarter: 2018Q4

REPORT INFORMATION
  Report Type: Report from Study
  Country: US (occurrence: US)
  Receive Date: 20181003
  Receipt Date: 20181025
  Transmission Date: 20190204
  Serious: Yes (Hospitalization, Disabling)
  Sender: FDA-Public Use
  Company Number: US-ACTELION-A-NJ2018-179312

PATIENT
  Age: 36 Year
  Sex: Female

DRUGS (3)
  1. VELETRI [Suspect]
     Active Substance: EPOPROSTENOL
     Indication: PULMONARY ARTERIAL HYPERTENSION
     Dosage: 12 NG/KG, PER MIN
     Route: 042
     Dates: start: 20180920
  2. VELETRI [Suspect]
     Active Substance: EPOPROSTENOL
     Dosage: 12 NG/KG, PER MIN
     Route: 042
     Dates: end: 20181015
  3. VELETRI [Suspect]
     Active Substance: EPOPROSTENOL
     Dosage: 14 NG/KG, PER MIN
     Route: 042
     Dates: start: 20180923, end: 20180924

REACTIONS (12)
  - Chest pain [Not Recovered/Not Resolved]
  - Nausea [Unknown]
  - Acute respiratory failure [Not Recovered/Not Resolved]
  - Treatment noncompliance [Not Recovered/Not Resolved]
  - Diarrhoea [Unknown]
  - Pain in jaw [Unknown]
  - Headache [Unknown]
  - Hypotension [Unknown]
  - Abdominal discomfort [Unknown]
  - Decreased appetite [Unknown]
  - Depressed mood [Unknown]
  - Dyspnoea [Not Recovered/Not Resolved]

NARRATIVE: CASE EVENT DATE: 20180924
